FAERS Safety Report 10788269 (Version 1)
Quarter: 2015Q1

REPORT INFORMATION
  Report Type: Spontaneous
  Country: US (occurrence: US)
  Receive Date: 20150212
  Receipt Date: 20150212
  Transmission Date: 20150721
  Serious: No
  Sender: FDA-Public Use
  Company Number: US-ASTRAZENECA-2015SE11102

PATIENT
  Age: 75 Year
  Sex: Female
  Weight: 112 kg

DRUGS (17)
  1. NITROGLYCERIN. [Concomitant]
     Active Substance: NITROGLYCERIN
     Indication: CHEST PAIN
  2. CUMADIN [Concomitant]
     Active Substance: WARFARIN SODIUM
  3. LASIX [Concomitant]
     Active Substance: FUROSEMIDE
  4. WARFARIN [Concomitant]
     Active Substance: WARFARIN
  5. DILCIAVEN [Concomitant]
     Indication: HEARING IMPAIRED
  6. HUMALOG [Concomitant]
     Active Substance: INSULIN LISPRO
     Indication: DIABETES MELLITUS
  7. CALCIUM WITH VITAMIN D [Concomitant]
     Active Substance: CALCIUM\VITAMIN D
  8. VITAMIN D3 [Concomitant]
     Active Substance: CHOLECALCIFEROL
  9. FUROSEMIDE. [Concomitant]
     Active Substance: FUROSEMIDE
  10. CRESTOR [Suspect]
     Active Substance: ROSUVASTATIN CALCIUM
     Route: 048
  11. BABY ASPIRIN [Concomitant]
     Active Substance: ASPIRIN
  12. KLOR-CON [Concomitant]
     Active Substance: POTASSIUM CHLORIDE
  13. CONVENT [Concomitant]
  14. LEVEMERE [Concomitant]
  15. BYDUREON [Suspect]
     Active Substance: EXENATIDE
     Indication: TYPE 2 DIABETES MELLITUS
     Route: 058
  16. VITAMIN C [Concomitant]
     Active Substance: ASCORBIC ACID
  17. CQ10 [Concomitant]
     Active Substance: UBIDECARENONE

REACTIONS (1)
  - Injection site pain [Unknown]

NARRATIVE: CASE EVENT DATE: 20150201
